FAERS Safety Report 18987372 (Version 1)
Quarter: 2021Q1

REPORT INFORMATION
  Report Type: Spontaneous
  Country: GB (occurrence: GB)
  Receive Date: 20210309
  Receipt Date: 20210309
  Transmission Date: 20210420
  Serious: Yes (Disabling, Other)
  Sender: FDA-Public Use
  Company Number: GB-TEVA-2021-GB-1885717

PATIENT
  Age: 60 Year
  Sex: Female
  Weight: 72 kg

DRUGS (11)
  1. DOXYCYCLINE. [Concomitant]
     Active Substance: DOXYCYCLINE
     Dosage: 1 DOSAGE FORMS DAILY; TAKE TWO NOW THEN ONE DAILY
     Dates: start: 20210215, end: 20210219
  2. TIOTROPIUM [Concomitant]
     Active Substance: TIOTROPIUM
     Dosage: 2 DOSAGE FORMS DAILY; TWO PUFFS ONCE DAILY
     Dates: start: 20201117
  3. PREDNISOLONE. [Suspect]
     Active Substance: PREDNISOLONE
     Dosage: 6 DOSAGE FORMS DAILY;
     Dates: start: 20210215
  4. FLUOXETINE [Concomitant]
     Active Substance: FLUOXETINE HYDROCHLORIDE
     Dosage: 2 DOSAGE FORMS DAILY;
     Dates: start: 20201117
  5. LANSOPRAZOLE. [Concomitant]
     Active Substance: LANSOPRAZOLE
     Dosage: 1 DOSAGE FORMS DAILY;
     Dates: start: 20201117
  6. ZAPAIN [Concomitant]
     Active Substance: ACETAMINOPHEN\CODEINE PHOSPHATE
     Dosage: TAKE 1 OR 2 4 TIMES A DAY
     Dates: start: 20210107, end: 20210119
  7. SALBUTAMOL [Concomitant]
     Active Substance: ALBUTEROL
     Dosage: 2 PUFFS AS REQUIRED FOR WHEEZE OR BREATHLESSNESS.
     Dates: start: 20201117
  8. PREDNISOLONE. [Concomitant]
     Active Substance: PREDNISOLONE
     Dosage: 6 DOSAGE FORMS DAILY;
     Dates: start: 20210215
  9. PREDNISOLONE. [Suspect]
     Active Substance: PREDNISOLONE
     Dosage: 5 MG
     Dates: start: 20210219
  10. AMOXICILLIN. [Concomitant]
     Active Substance: AMOXICILLIN
     Dosage: 3 DOSAGE FORMS DAILY;
     Dates: start: 20210107, end: 20210114
  11. DUORESP SPIROMAX [Concomitant]
     Active Substance: BUDESONIDE\FORMOTEROL
     Dosage: 4 DOSAGE FORMS DAILY; TWO PUFFS TWICE A DAY
     Route: 055
     Dates: start: 20201117

REACTIONS (1)
  - Back pain [Recovered/Resolved]

NARRATIVE: CASE EVENT DATE: 20210219
